FAERS Safety Report 6207266-6 (Version None)
Quarter: 2009Q2

REPORT INFORMATION
  Report Type: 
  Country: None (occurrence: None)
  Receive Date: 20090528
  Receipt Date: 20090521
  Transmission Date: 20091009
  Serious: Yes (Other)
  Sender: FDA-Public Use
  Company Number: ES-ABBOTT-09P-144-0575204-00

PATIENT
  Sex: Female

DRUGS (2)
  1. HUMIRA [Suspect]
     Indication: CROHN'S DISEASE
     Route: 058
     Dates: start: 20080101, end: 20090501
  2. IMUREL [Concomitant]
     Indication: CROHN'S DISEASE
     Dates: end: 20090501

REACTIONS (1)
  - INTRADUCTAL PAPILLOMA OF BREAST [None]
